FAERS Safety Report 6720223-6 (Version None)
Quarter: 2010Q2

REPORT INFORMATION
  Report Type: 
  Country: None (occurrence: None)
  Receive Date: 20100511
  Receipt Date: 20100504
  Transmission Date: 20101027
  Serious: Yes (Other)
  Sender: FDA-Public Use
  Company Number: US-RB-005979-10

PATIENT
  Age: 44 Year
  Sex: Female

DRUGS (4)
  1. SUBOXONE [Suspect]
     Route: 060
     Dates: start: 20100329, end: 20100329
  2. SUBOXONE [Suspect]
     Route: 060
     Dates: start: 20100405, end: 20100405
  3. SUBOXONE [Suspect]
     Route: 060
     Dates: start: 20100406
  4. LEXAPRO [Concomitant]
     Indication: DEPRESSION
     Dosage: DOSING DETAILS UNKNOWN
     Route: 065

REACTIONS (15)
  - BLOOD PRESSURE DECREASED [None]
  - DIZZINESS [None]
  - DYSPHAGIA [None]
  - FEELING ABNORMAL [None]
  - FEELING JITTERY [None]
  - HALLUCINATIONS, MIXED [None]
  - HEADACHE [None]
  - INCREASED APPETITE [None]
  - INSOMNIA [None]
  - MIOSIS [None]
  - NAUSEA [None]
  - OEDEMA PERIPHERAL [None]
  - SOMNOLENCE [None]
  - SPEECH DISORDER [None]
  - WEIGHT INCREASED [None]
